FAERS Safety Report 10252058 (Version 4)
Quarter: 2016Q1

REPORT INFORMATION
  Report Type: Report from Study
  Country: US (occurrence: US)
  Receive Date: 20140623
  Receipt Date: 20160222
  Transmission Date: 20160525
  Serious: Yes (Other)
  Sender: FDA-Public Use
  Company Number: US-SA-2014SA076722

PATIENT
  Age: 67 Year
  Sex: Female

DRUGS (6)
  1. APIDRA SOLOSTAR [Suspect]
     Active Substance: INSULIN GLULISINE
     Indication: DIABETES MELLITUS
     Dosage: START DATE REPORTED AS FEW YEARS AGO, 5-6 UNITS THREE TIMES A DAY WITH MEALS
     Route: 058
  2. APIDRA SOLOSTAR [Suspect]
     Active Substance: INSULIN GLULISINE
     Indication: DIABETES MELLITUS
     Dosage: 7-9 UNITS WITH EACH MEAL
     Route: 058
  3. LANTUS SOLOSTAR [Suspect]
     Active Substance: INSULIN GLARGINE
     Indication: DIABETES MELLITUS
     Dosage: START DATE REPORTED AS SEVERAL YEARS AGO DOSE:26 UNIT(S)
     Route: 058
  4. SOLOSTAR [Concomitant]
     Active Substance: DEVICE
  5. SOLOSTAR [Concomitant]
     Active Substance: DEVICE
  6. SOLOSTAR [Concomitant]
     Active Substance: DEVICE

REACTIONS (4)
  - Back disorder [Recovered/Resolved]
  - Blood glucose increased [Recovered/Resolved]
  - Nerve compression [Not Recovered/Not Resolved]
  - Deafness [Unknown]
